FAERS Safety Report 23334840 (Version 10)
Quarter: 2025Q2

REPORT INFORMATION
  Report Type: Other
  Country: US (occurrence: US)
  Receive Date: 20231224
  Receipt Date: 20250428
  Transmission Date: 20250716
  Serious: Yes (Hospitalization, Other)
  Sender: TRAVERE THERAPEUTICS
  Company Number: US-TRAVERE-2023TVT00799

PATIENT
  Age: 76 Year
  Sex: Female

DRUGS (18)
  1. FILSPARI [Suspect]
     Active Substance: SPARSENTAN
     Indication: IgA nephropathy
     Route: 048
     Dates: start: 20231122
  2. FILSPARI [Suspect]
     Active Substance: SPARSENTAN
     Indication: Chronic kidney disease
     Route: 048
  3. FILSPARI [Suspect]
     Active Substance: SPARSENTAN
     Indication: Proteinuria
  4. FILSPARI [Suspect]
     Active Substance: SPARSENTAN
     Indication: Haematuria
  5. FILSPARI [Suspect]
     Active Substance: SPARSENTAN
     Indication: Hyperparathyroidism primary
  6. HYDROCHLOROTHIAZIDE [Concomitant]
     Active Substance: HYDROCHLOROTHIAZIDE
  7. METOPROLOL [Concomitant]
     Active Substance: METOPROLOL
  8. AMLODIPINE [Concomitant]
     Active Substance: AMLODIPINE BESYLATE
  9. VITAMIN E [Concomitant]
     Active Substance: .ALPHA.-TOCOPHEROL
  10. VITAMIN D3 [Concomitant]
     Active Substance: CHOLECALCIFEROL
  11. MONTELUKAST [Concomitant]
     Active Substance: MONTELUKAST
  12. PREDNISONE [Concomitant]
     Active Substance: PREDNISONE
  13. LOVASTATIN [Concomitant]
     Active Substance: LOVASTATIN
  14. CLONIDINE [Concomitant]
     Active Substance: CLONIDINE
  15. GABAPENTIN [Concomitant]
     Active Substance: GABAPENTIN
  16. FISH OIL [Concomitant]
     Active Substance: FISH OIL
  17. FARXIGA [Concomitant]
     Active Substance: DAPAGLIFLOZIN PROPANEDIOL
  18. ALLOPURINOL [Concomitant]
     Active Substance: ALLOPURINOL
     Indication: Gout

REACTIONS (24)
  - Hypotension [Recovered/Resolved]
  - Blood glucose decreased [Unknown]
  - Chest pain [Unknown]
  - Foot fracture [Unknown]
  - Pyrexia [Recovered/Resolved]
  - Chills [Recovered/Resolved]
  - Blood pressure decreased [Recovered/Resolved]
  - Ear pain [Unknown]
  - Dehydration [Unknown]
  - Pain [Unknown]
  - Heart rate increased [Unknown]
  - Peripheral swelling [None]
  - Tendon rupture [Unknown]
  - Gout [Unknown]
  - Pain in extremity [Unknown]
  - Glomerular filtration rate decreased [Recovering/Resolving]
  - Blood creatinine increased [Unknown]
  - Proteinuria [Recovering/Resolving]
  - Sinusitis [Unknown]
  - Illness [Unknown]
  - Dizziness [None]
  - Joint swelling [None]
  - Blood phosphorus increased [Unknown]
  - Parathyroid disorder [Unknown]

NARRATIVE: CASE EVENT DATE: 20231122
